FAERS Safety Report 10344706 (Version 1)
Quarter: 2014Q3

REPORT INFORMATION
  Report Type: Spontaneous
  Country: IN (occurrence: None)
  Receive Date: 20140724
  Receipt Date: 20140724
  Transmission Date: 20150326
  Serious: Yes (Life-Threatening, Hospitalization)
  Sender: FDA-Public Use
  Company Number: 2014/053

PATIENT
  Age: 42 Year
  Sex: Male

DRUGS (1)
  1. AMLODIPINE [Suspect]
     Active Substance: AMLODIPINE BESYLATE
     Route: 048

REACTIONS (10)
  - Somnolence [None]
  - Blood pressure decreased [None]
  - Hyperinsulinaemia [None]
  - Respiratory rate decreased [None]
  - Metabolic acidosis [None]
  - Continuous haemodiafiltration [None]
  - Heart rate decreased [None]
  - Hyperlactacidaemia [None]
  - Intentional overdose [None]
  - Respiratory acidosis [None]
